FAERS Safety Report 10142300 (Version 1)
Quarter: 2014Q2

REPORT INFORMATION
  Report Type: Spontaneous
  Country: FR (occurrence: FR)
  Receive Date: 20140429
  Receipt Date: 20140429
  Transmission Date: 20141212
  Serious: Yes (Hospitalization)
  Sender: FDA-Public Use
  Company Number: PHHY2014FR051485

PATIENT
  Age: 39 Year
  Sex: Female

DRUGS (5)
  1. CETIRIZINE SANDOZ [Suspect]
     Indication: PRURITUS
     Route: 048
     Dates: start: 20070509, end: 20070509
  2. CLARITYNE [Suspect]
     Route: 048
     Dates: start: 20070502
  3. NASONEX [Suspect]
     Route: 048
     Dates: start: 20070502
  4. AERIUS [Suspect]
     Dosage: 2 DF, ONCE/SINGLE
     Route: 065
  5. PREDNISONE [Concomitant]
     Indication: PRURITUS
     Route: 065

REACTIONS (5)
  - Respiratory disorder [Recovered/Resolved]
  - Pruritus [Recovered/Resolved]
  - Urticaria [Recovered/Resolved]
  - Eczema [Recovered/Resolved]
  - Angioedema [Recovered/Resolved]
